FAERS Safety Report 25446060 (Version 1)
Quarter: 2025Q2

REPORT INFORMATION
  Report Type: Spontaneous
  Country: US (occurrence: US)
  Receive Date: 20250617
  Receipt Date: 20250617
  Transmission Date: 20250716
  Serious: No
  Sender: THE ACME LABORATORIES LTD
  Company Number: US-The ACME Laboratories Ltd-2178874

PATIENT
  Age: 71 Year
  Sex: Female
  Weight: 109.09 kg

DRUGS (1)
  1. ZOLPIDEM TARTRATE [Suspect]
     Active Substance: ZOLPIDEM TARTRATE
     Indication: Insomnia

REACTIONS (3)
  - Insomnia [Not Recovered/Not Resolved]
  - Product shape issue [Unknown]
  - Fatigue [Not Recovered/Not Resolved]
